FAERS Safety Report 4632274-6 (Version None)
Quarter: 2005Q2

REPORT INFORMATION
  Report Type: 
  Country: None (occurrence: None)
  Receive Date: 20050411
  Receipt Date: 20050325
  Transmission Date: 20051028
  Serious: Yes (Other)
  Sender: FDA-Public Use
  Company Number: JP-ROCHE-400236

PATIENT
  Age: 32 Year
  Sex: Male

DRUGS (5)
  1. TAMIFLU [Suspect]
     Route: 048
     Dates: start: 20050318, end: 20050318
  2. TAMIFLU [Suspect]
     Route: 048
     Dates: start: 20050319, end: 20050319
  3. TAMIFLU [Suspect]
     Route: 048
     Dates: start: 20050320, end: 20050320
  4. ANHIBA [Concomitant]
     Route: 054
     Dates: start: 20050317, end: 20050318
  5. SP [Concomitant]
     Dosage: FORMULATION: LOZENGE ROUTE: OROPHARINGEAL
     Route: 050
     Dates: start: 20050317, end: 20050318

REACTIONS (3)
  - DRUG TOXICITY [None]
  - PAIN [None]
  - PAIN OF SKIN [None]
